FAERS Safety Report 9391225 (Version 1)
Quarter: 2013Q3

REPORT INFORMATION
  Report Type: Spontaneous
  Country: US (occurrence: None)
  Receive Date: 20130705
  Receipt Date: 20130705
  Transmission Date: 20140515
  Serious: Yes (Other)
  Sender: FDA-Public Use
  Company Number: 2013010041

PATIENT
  Age: 54 Year
  Sex: Female

DRUGS (3)
  1. ELESTRIN [Suspect]
     Indication: HOT FLUSH
     Route: 061
  2. PROMETRIUM (PROGESTERONE) [Concomitant]
  3. LOVAZA (OMEGA 3 ACID ETHYL ESTERS) [Concomitant]

REACTIONS (1)
  - Tremor [None]
